FAERS Safety Report 19057564 (Version 7)
Quarter: 2021Q2

REPORT INFORMATION
  Report Type: Spontaneous
  Country: US (occurrence: US)
  Receive Date: 20210324
  Receipt Date: 20210621
  Transmission Date: 20210717
  Serious: Yes (Life-Threatening, Hospitalization)
  Sender: FDA-Public Use
  Company Number: US-ANIPHARMA-2021-US-006109

PATIENT
  Sex: Male

DRUGS (7)
  1. CYCLOSPORIN [Concomitant]
     Active Substance: CYCLOSPORINE
     Route: 065
  2. PANTOPRAZOLE [Concomitant]
     Active Substance: PANTOPRAZOLE
     Route: 065
  3. VALTREX [Concomitant]
     Active Substance: VALACYCLOVIR HYDROCHLORIDE
     Route: 065
  4. LITHOBID [Suspect]
     Active Substance: LITHIUM CARBONATE
     Indication: BIPOLAR DISORDER
     Route: 065
  5. ANTITHYMOCYTE IMMUNOGLOBULIN COMP?AIM+CSOLINF [Suspect]
     Active Substance: THYMOCYTE IMMUNE GLOBULIN NOS
     Route: 042
     Dates: start: 20201103
  6. ELTROMBOPAG [Suspect]
     Active Substance: ELTROMBOPAG
     Route: 048
     Dates: start: 20201009
  7. ZYPREXA [Suspect]
     Active Substance: OLANZAPINE
     Dosage: 2.5 MG, QD
     Route: 048

REACTIONS (2)
  - Suicidal ideation [Unknown]
  - Mania [Unknown]

NARRATIVE: CASE EVENT DATE: 20210216
